FAERS Safety Report 9857835 (Version 2)
Quarter: 2014Q1

REPORT INFORMATION
  Report Type: Report from Study
  Country: CA (occurrence: CA)
  Receive Date: 20140131
  Receipt Date: 20140131
  Transmission Date: 20141002
  Serious: Yes (Other)
  Sender: FDA-Public Use
  Company Number: CA-ROCHE-1235743

PATIENT
  Sex: Female
  Weight: 61.2 kg

DRUGS (10)
  1. RITUXAN [Suspect]
     Indication: RHEUMATOID ARTHRITIS
     Dosage: FREQUENCY: DAY  1, DAY 15
     Route: 042
     Dates: start: 20100526, end: 20100617
  2. DIPHENHYDRAMINE HCL [Concomitant]
     Route: 048
     Dates: start: 20100526, end: 20100617
  3. ACETAMINOPHEN [Concomitant]
     Route: 048
     Dates: start: 20100526, end: 20100617
  4. METHYLPREDNISOLONE [Concomitant]
     Route: 042
     Dates: start: 20100526, end: 20100617
  5. LOPRESSOR [Concomitant]
  6. GLYBURIDE/METFORMIN [Concomitant]
     Indication: DIABETES MELLITUS
  7. FISH OIL [Concomitant]
  8. PREDNISONE [Concomitant]
  9. LYRICA [Concomitant]
     Route: 065
  10. CIMZIA [Concomitant]

REACTIONS (4)
  - Drug ineffective [Unknown]
  - Urinary tract infection [Not Recovered/Not Resolved]
  - Asthenia [Not Recovered/Not Resolved]
  - Memory impairment [Not Recovered/Not Resolved]
